FAERS Safety Report 5142567-4 (Version None)
Quarter: 2006Q4

REPORT INFORMATION
  Report Type: 
  Country: None (occurrence: None)
  Receive Date: 20061027
  Receipt Date: 20061016
  Transmission Date: 20070319
  Serious: Yes (Other)
  Sender: FDA-Public Use
  Company Number: 2006126849

PATIENT
  Age: 63 Year
  Sex: Female

DRUGS (1)
  1. ALDACTAZIDE [Suspect]

REACTIONS (5)
  - BLOOD PRESSURE INCREASED [None]
  - HEART RATE IRREGULAR [None]
  - PALPITATIONS [None]
  - SENSORY DISTURBANCE [None]
  - TACHYCARDIA [None]
